FAERS Safety Report 6590743-6 (Version None)
Quarter: 2010Q1

REPORT INFORMATION
  Report Type: 
  Country: None (occurrence: None)
  Receive Date: 20100219
  Receipt Date: 20100211
  Transmission Date: 20100710
  Serious: Yes (Other)
  Sender: FDA-Public Use
  Company Number: BR-JNJFOC-20100205409

PATIENT
  Age: 42 Year
  Sex: Male

DRUGS (4)
  1. HALOPERIDOL [Suspect]
     Indication: BIPOLAR DISORDER
     Route: 065
  2. THIORIDAZINE HCL [Suspect]
     Indication: BIPOLAR DISORDER
     Route: 065
  3. LORAZEPAM [Concomitant]
     Indication: BIPOLAR DISORDER
     Route: 065
  4. LITHIUM CARBONATE [Concomitant]
     Indication: BIPOLAR DISORDER
     Route: 065

REACTIONS (5)
  - ANGER [None]
  - DELIRIUM [None]
  - HOSTILITY [None]
  - PSYCHOMOTOR HYPERACTIVITY [None]
  - WEIGHT DECREASED [None]
